FAERS Safety Report 24759947 (Version 5)
Quarter: 2025Q2

REPORT INFORMATION
  Report Type: Report from Study
  Country: CN (occurrence: CN)
  Receive Date: 20241220
  Receipt Date: 20250619
  Transmission Date: 20250716
  Serious: Yes (Life-Threatening)
  Sender: ROCHE
  Company Number: CN-ROCHE-10000158474

PATIENT
  Age: 57 Year
  Sex: Male
  Weight: 76 kg

DRUGS (70)
  1. POLATUZUMAB VEDOTIN [Suspect]
     Active Substance: POLATUZUMAB VEDOTIN
     Indication: Diffuse large B-cell lymphoma
     Route: 042
     Dates: start: 20240423, end: 20240423
  2. POLATUZUMAB VEDOTIN [Suspect]
     Active Substance: POLATUZUMAB VEDOTIN
     Route: 042
     Dates: start: 20240615, end: 20240615
  3. POLATUZUMAB VEDOTIN [Suspect]
     Active Substance: POLATUZUMAB VEDOTIN
     Route: 042
     Dates: start: 20240614, end: 20240614
  4. RITUXIMAB [Suspect]
     Active Substance: RITUXIMAB
     Indication: Diffuse large B-cell lymphoma
     Route: 042
     Dates: start: 20240420, end: 20240420
  5. RITUXIMAB [Suspect]
     Active Substance: RITUXIMAB
     Route: 042
     Dates: start: 20240614, end: 20240614
  6. RITUXIMAB [Suspect]
     Active Substance: RITUXIMAB
     Route: 042
     Dates: start: 20240614
  7. RITUXIMAB [Suspect]
     Active Substance: RITUXIMAB
     Route: 042
     Dates: start: 20240520
  8. CYCLOPHOSPHAMIDE [Suspect]
     Active Substance: CYCLOPHOSPHAMIDE
     Indication: Diffuse large B-cell lymphoma
     Route: 042
     Dates: start: 20240421, end: 20240421
  9. CYCLOPHOSPHAMIDE [Suspect]
     Active Substance: CYCLOPHOSPHAMIDE
     Route: 042
     Dates: start: 20240615, end: 20240615
  10. CYCLOPHOSPHAMIDE [Suspect]
     Active Substance: CYCLOPHOSPHAMIDE
     Route: 042
     Dates: start: 20240614
  11. CYCLOPHOSPHAMIDE [Suspect]
     Active Substance: CYCLOPHOSPHAMIDE
     Route: 042
     Dates: start: 20240712
  12. CYCLOPHOSPHAMIDE [Suspect]
     Active Substance: CYCLOPHOSPHAMIDE
     Route: 042
     Dates: start: 20240813
  13. CYCLOPHOSPHAMIDE [Suspect]
     Active Substance: CYCLOPHOSPHAMIDE
     Route: 042
     Dates: start: 20240913
  14. PREDNISONE [Suspect]
     Active Substance: PREDNISONE
     Indication: Diffuse large B-cell lymphoma
     Route: 048
     Dates: start: 20240421, end: 20240425
  15. PREDNISONE [Suspect]
     Active Substance: PREDNISONE
     Route: 048
     Dates: start: 20240615, end: 20240619
  16. ACALABRUTINIB [Suspect]
     Active Substance: ACALABRUTINIB
     Indication: Diffuse large B-cell lymphoma
     Route: 048
  17. DOXORUBICIN HYDROCHLORIDE [Suspect]
     Active Substance: DOXORUBICIN HYDROCHLORIDE
     Indication: Diffuse large B-cell lymphoma
     Route: 042
     Dates: start: 20240615, end: 20240615
  18. DOXORUBICIN HYDROCHLORIDE [Suspect]
     Active Substance: DOXORUBICIN HYDROCHLORIDE
     Route: 042
     Dates: start: 20240421, end: 20240421
  19. METHYLPREDNISOLONE SODIUM SUCCINATE [Concomitant]
     Active Substance: METHYLPREDNISOLONE SODIUM SUCCINATE
     Indication: Infection
     Route: 042
     Dates: start: 20240713, end: 20240713
  20. METHYLPREDNISOLONE SODIUM SUCCINATE [Concomitant]
     Active Substance: METHYLPREDNISOLONE SODIUM SUCCINATE
     Route: 042
     Dates: start: 20240813, end: 20240813
  21. METHYLPREDNISOLONE SODIUM SUCCINATE [Concomitant]
     Active Substance: METHYLPREDNISOLONE SODIUM SUCCINATE
     Route: 042
     Dates: start: 20240914, end: 20240914
  22. METHYLPREDNISOLONE SODIUM SUCCINATE [Concomitant]
     Active Substance: METHYLPREDNISOLONE SODIUM SUCCINATE
     Route: 042
     Dates: start: 20240613, end: 20240615
  23. Rabeprazole sodium enteric capsules [Concomitant]
     Route: 048
     Dates: start: 20240417, end: 20240712
  24. Rabeprazole sodium enteric capsules [Concomitant]
     Route: 048
     Dates: start: 20240716, end: 20240718
  25. Rabeprazole sodium enteric capsules [Concomitant]
     Dosage: FOR STOMACH PROTECTION
     Route: 048
     Dates: start: 20240814, end: 20240818
  26. Rabeprazole sodium enteric capsules [Concomitant]
     Dosage: FOR STOMACH PROTECTION
     Route: 048
     Dates: start: 20240914, end: 20240914
  27. Cefaclor extended-release tablets [Concomitant]
     Indication: Infection
     Route: 048
     Dates: start: 20240424
  28. Entecavir tablets [Concomitant]
     Dosage: FOR LIVER PROTECTION
     Route: 048
     Dates: start: 20240424
  29. Entecavir tablets [Concomitant]
     Route: 048
     Dates: start: 20240712
  30. Diammonium glycyrrhizinate enteric capsule [Concomitant]
     Dosage: FOR LIVER PROTECTION
     Route: 048
     Dates: start: 20240424
  31. Metoprolol succinate sustained release tablets [Concomitant]
     Route: 048
     Dates: start: 20240419
  32. Mecobalamine tablets [Concomitant]
     Route: 048
     Dates: start: 20240613
  33. Mecobalamine tablets [Concomitant]
     Route: 048
     Dates: start: 20240613
  34. PROMETHAZINE [Concomitant]
     Active Substance: PROMETHAZINE HYDROCHLORIDE
     Route: 030
     Dates: start: 20240713, end: 20240713
  35. PROMETHAZINE [Concomitant]
     Active Substance: PROMETHAZINE HYDROCHLORIDE
     Route: 030
     Dates: start: 20240813, end: 20240814
  36. PROMETHAZINE [Concomitant]
     Active Substance: PROMETHAZINE HYDROCHLORIDE
     Route: 030
     Dates: start: 20240914, end: 20240915
  37. PROMETHAZINE [Concomitant]
     Active Substance: PROMETHAZINE HYDROCHLORIDE
     Route: 030
     Dates: start: 20240422, end: 20240424
  38. PROMETHAZINE [Concomitant]
     Active Substance: PROMETHAZINE HYDROCHLORIDE
     Route: 030
     Dates: start: 20240521, end: 20240522
  39. PROMETHAZINE [Concomitant]
     Active Substance: PROMETHAZINE HYDROCHLORIDE
     Route: 030
     Dates: start: 20240615, end: 20240616
  40. INSULIN HUMAN [Concomitant]
     Active Substance: INSULIN HUMAN
     Route: 042
     Dates: start: 20240713, end: 20240713
  41. INSULIN HUMAN [Concomitant]
     Active Substance: INSULIN HUMAN
     Route: 042
     Dates: start: 20240814, end: 20240814
  42. INSULIN HUMAN [Concomitant]
     Active Substance: INSULIN HUMAN
     Route: 042
     Dates: start: 20240422, end: 20240424
  43. INSULIN HUMAN [Concomitant]
     Active Substance: INSULIN HUMAN
     Route: 042
     Dates: start: 20240521, end: 20240522
  44. INSULIN HUMAN [Concomitant]
     Active Substance: INSULIN HUMAN
     Route: 042
     Dates: start: 20240615, end: 20240616
  45. METHOTREXATE [Concomitant]
     Active Substance: METHOTREXATE
     Route: 029
     Dates: start: 20240711, end: 20240711
  46. METHOTREXATE [Concomitant]
     Active Substance: METHOTREXATE
     Route: 029
     Dates: start: 20240812, end: 20240812
  47. CYTARABINE HYDROCHLORIDE [Concomitant]
     Active Substance: CYTARABINE HYDROCHLORIDE
     Route: 029
     Dates: start: 20240711, end: 20240711
  48. CYTARABINE HYDROCHLORIDE [Concomitant]
     Active Substance: CYTARABINE HYDROCHLORIDE
     Route: 029
     Dates: start: 20240812, end: 20240812
  49. Omeprazole enteric-coated capsules [Concomitant]
     Route: 048
     Dates: start: 20240813, end: 20240813
  50. Omeprazole enteric-coated capsules [Concomitant]
     Route: 048
     Dates: start: 20240914, end: 20240914
  51. Palonosetron hydrochloride capsules [Concomitant]
     Route: 048
     Dates: start: 20240813, end: 20240813
  52. Palonosetron hydrochloride capsules [Concomitant]
     Route: 048
     Dates: start: 20240520, end: 20240520
  53. Compound acetaminophen tablets [Concomitant]
     Route: 048
     Dates: start: 20240814, end: 20240814
  54. Compound acetaminophen tablets [Concomitant]
     Route: 048
     Dates: start: 20240422, end: 20240424
  55. Compound acetaminophen tablets [Concomitant]
     Route: 048
     Dates: start: 20240521, end: 20240522
  56. Compound acetaminophen tablets [Concomitant]
     Route: 048
     Dates: start: 20240614, end: 20240616
  57. SODIUM BICARBONATE [Concomitant]
     Active Substance: SODIUM BICARBONATE
     Route: 042
     Dates: start: 20240814, end: 20240814
  58. SODIUM BICARBONATE [Concomitant]
     Active Substance: SODIUM BICARBONATE
     Route: 042
     Dates: start: 20240425, end: 20240425
  59. SODIUM BICARBONATE [Concomitant]
     Active Substance: SODIUM BICARBONATE
     Route: 042
     Dates: start: 20240615, end: 20240616
  60. leucogen tablet [Concomitant]
     Indication: Myelosuppression
     Route: 048
     Dates: start: 20240424, end: 20240712
  61. leucogen tablet [Concomitant]
     Dosage: TO RAISE WHITE BLOOD CELLS AND PLATELETS
     Route: 048
     Dates: start: 20240813
  62. RABEPRAZOLE [Concomitant]
     Active Substance: RABEPRAZOLE
     Dosage: FORM: ENTERIC CAPSULE?INDICATION: STOMACH PROTECTION
     Route: 048
     Dates: start: 20240519
  63. MEROPENEM [Concomitant]
     Active Substance: MEROPENEM
     Route: 042
     Dates: start: 20240417, end: 20240425
  64. GLUTATHIONE [Concomitant]
     Active Substance: GLUTATHIONE
     Route: 042
     Dates: start: 20240422, end: 20240425
  65. Human blood albumin [Concomitant]
     Dates: start: 20240422, end: 20240425
  66. DEXAMETHASONE SODIUM PHOSPHATE [Concomitant]
     Active Substance: DEXAMETHASONE SODIUM PHOSPHATE
     Route: 029
     Dates: start: 20240812, end: 20240812
  67. DEXAMETHASONE SODIUM PHOSPHATE [Concomitant]
     Active Substance: DEXAMETHASONE SODIUM PHOSPHATE
     Route: 029
     Dates: start: 20240522, end: 20240522
  68. DEXAMETHASONE SODIUM PHOSPHATE [Concomitant]
     Active Substance: DEXAMETHASONE SODIUM PHOSPHATE
     Route: 029
     Dates: start: 20240613, end: 20240613
  69. DEXAMETHASONE SODIUM PHOSPHATE [Concomitant]
     Active Substance: DEXAMETHASONE SODIUM PHOSPHATE
     Route: 029
     Dates: start: 20240711, end: 20240711
  70. LIDOCAINE HYDROCHLORIDE [Concomitant]
     Active Substance: LIDOCAINE HYDROCHLORIDE
     Route: 058
     Dates: start: 20240613, end: 20240613

REACTIONS (1)
  - Myelosuppression [Not Recovered/Not Resolved]

NARRATIVE: CASE EVENT DATE: 20240524
